FAERS Safety Report 6708853-9 (Version None)
Quarter: 2010Q2

REPORT INFORMATION
  Report Type: 
  Country: None (occurrence: None)
  Receive Date: 20100503
  Receipt Date: 20100503
  Transmission Date: 20101027
  Serious: Yes (Death)
  Sender: FDA-Public Use
  Company Number: None

PATIENT
  Sex: Female
  Weight: 58.514 kg

DRUGS (4)
  1. RECLAST [Suspect]
     Indication: OSTEOPOROSIS
     Dosage: RECLAST 5MG 30MIN IV
     Route: 042
     Dates: start: 20100325
  2. LISINOPRIL [Concomitant]
  3. SYNTHROID [Concomitant]
  4. COUMADIN [Concomitant]

REACTIONS (5)
  - MALAISE [None]
  - MENTAL STATUS CHANGES [None]
  - SUBDURAL HAEMATOMA [None]
  - UNRESPONSIVE TO STIMULI [None]
  - UPPER GASTROINTESTINAL HAEMORRHAGE [None]
